FAERS Safety Report 9222340 (Version 1)
Quarter: 2013Q1

REPORT INFORMATION
  Report Type: Spontaneous
  Country: US (occurrence: None)
  Receive Date: 20120914
  Receipt Date: 20120914
  Transmission Date: 20140127
  Serious: Yes (Other)
  Sender: FDA-Public Use
  Company Number: JPI-P-015989

PATIENT
  Age: 65 Year
  Sex: Female

DRUGS (3)
  1. XYREM (500 MILLIGRAM/MILLILITERS, SOLUTION) (SODIUM OXYBATE) [Suspect]
     Indication: NARCOLEPSY
     Dosage: 2.25 GM, 2 IN 1 D
     Route: 048
     Dates: start: 20110702, end: 20110711
  2. ROPINIROLE HYDROCHLORIDE [Suspect]
     Indication: PRODUCT USED FOR UNKNOWN INDICATION
  3. PRAMIPEXOLE [Suspect]
     Indication: PRODUCT USED FOR UNKNOWN INDICATION

REACTIONS (9)
  - Apnoea [None]
  - Poor quality sleep [None]
  - Moaning [None]
  - Heart rate irregular [None]
  - Flushing [None]
  - Disorientation [None]
  - Confusional state [None]
  - Peripheral coldness [None]
  - Mental impairment [None]
